FAERS Safety Report 8769436 (Version 5)
Quarter: 2015Q3

REPORT INFORMATION
  Report Type: Spontaneous
  Country: US (occurrence: US)
  Receive Date: 20120905
  Receipt Date: 20150717
  Transmission Date: 20151125
  Serious: Yes (Other)
  Sender: FDA-Public Use
  Company Number: US-009507513-1208USA012612

PATIENT
  Sex: Male
  Weight: 81.63 kg

DRUGS (3)
  1. PROPECIA [Suspect]
     Active Substance: FINASTERIDE
     Indication: ANDROGENETIC ALOPECIA
     Dosage: 1 MG, QD
     Route: 048
     Dates: start: 2000
  2. PROPECIA [Suspect]
     Active Substance: FINASTERIDE
     Indication: ANDROGENETIC ALOPECIA
  3. FINASTERIDE. [Suspect]
     Active Substance: FINASTERIDE
     Indication: ALOPECIA
     Dosage: 5 MG, QD
     Route: 048

REACTIONS (21)
  - Blood testosterone decreased [Unknown]
  - Erectile dysfunction [Unknown]
  - Depression [Unknown]
  - Libido decreased [Unknown]
  - Upper respiratory tract infection [Unknown]
  - House dust allergy [Unknown]
  - Urinary tract disorder [Unknown]
  - Sexual dysfunction [Not Recovered/Not Resolved]
  - Hernia [Unknown]
  - Gynaecomastia [Unknown]
  - Anogenital warts [Unknown]
  - Seasonal allergy [Unknown]
  - Lumbar vertebral fracture [Unknown]
  - Weight fluctuation [Unknown]
  - Insomnia [Unknown]
  - Cognitive disorder [Not Recovered/Not Resolved]
  - Anxiety [Unknown]
  - Pain in extremity [Unknown]
  - Surgery [Unknown]
  - Chest pain [Unknown]
  - Inguinal hernia [Unknown]

NARRATIVE: CASE EVENT DATE: 2000
